FAERS Safety Report 6963242-7 (Version None)
Quarter: 2010Q3

REPORT INFORMATION
  Report Type: 
  Country: None (occurrence: None)
  Receive Date: 20100902
  Receipt Date: 20100830
  Transmission Date: 20110219
  Serious: No
  Sender: FDA-Public Use
  Company Number: US-TEVA-246697USA

PATIENT
  Sex: Female
  Weight: 54.026 kg

DRUGS (1)
  1. ALBUTEROL SULFATE AUTOHALER [Suspect]
     Route: 055
     Dates: start: 20100816, end: 20100817

REACTIONS (2)
  - DIZZINESS [None]
  - NAUSEA [None]
